FAERS Safety Report 6573487-6 (Version None)
Quarter: 2010Q1

REPORT INFORMATION
  Report Type: 
  Country: None (occurrence: None)
  Receive Date: 20100204
  Receipt Date: 20100204
  Transmission Date: 20100710
  Serious: Yes (Other)
  Sender: FDA-Public Use
  Company Number: None

PATIENT
  Age: 62 Year
  Sex: Female
  Weight: 65.9 kg

DRUGS (2)
  1. BONIVA [Suspect]
     Indication: BONE DENSITY DECREASED
     Dosage: 1 PILL  ONCE MONTHLY ORAL
     Route: 048
     Dates: start: 20091211
  2. BONIVA [Suspect]
     Indication: BONE DENSITY DECREASED
     Dosage: 1 PILL  ONCE MONTHLY ORAL
     Route: 048
     Dates: start: 20100111

REACTIONS (4)
  - BACK PAIN [None]
  - CHEST PAIN [None]
  - DYSPNOEA [None]
  - PAIN IN EXTREMITY [None]
